FAERS Safety Report 4414199-4 (Version None)
Quarter: 2004Q3

REPORT INFORMATION
  Report Type: 
  Country: None (occurrence: None)
  Receive Date: 20040729
  Receipt Date: 20040726
  Transmission Date: 20050211
  Serious: Yes (Death)
  Sender: FDA-Public Use
  Company Number: 2004-118117-NL

PATIENT
  Age: 57 Year
  Sex: Male

DRUGS (6)
  1. ROCURONIUM BROMIDE [Suspect]
     Indication: NEUROMUSCULAR BLOCKADE
     Dosage: INTRAVENOUS (NOS)
     Route: 042
  2. SUCCINYLCHOLINE CHLORIDE [Suspect]
     Indication: NEUROMUSCULAR BLOCKADE
     Dosage: INTRAVENOUS (NOS)
     Route: 042
  3. DEXAMETHASONE [Concomitant]
  4. FENTANYL [Concomitant]
  5. ONDANSETRON [Concomitant]
  6. PROPOFOL [Concomitant]

REACTIONS (4)
  - ANAPHYLACTIC REACTION [None]
  - BRADYCARDIA [None]
  - BRONCHOSPASM [None]
  - CARDIAC ARREST [None]
